FAERS Safety Report 19242951 (Version 2)
Quarter: 2021Q2

REPORT INFORMATION
  Report Type: Report from Study
  Country: None (occurrence: CA)
  Receive Date: 20210510
  Receipt Date: 20210522
  Transmission Date: 20210717
  Serious: Yes (Other)
  Sender: FDA-Public Use
  Company Number: CA-ABBVIE-21K-028-3878593-00

PATIENT
  Age: 34 Year
  Sex: Male

DRUGS (1)
  1. HUMIRA [Suspect]
     Active Substance: ADALIMUMAB
     Indication: COLITIS ULCERATIVE
     Route: 058
     Dates: start: 20200406, end: 20210415

REACTIONS (6)
  - Folliculitis [Not Recovered/Not Resolved]
  - Erythema [Not Recovered/Not Resolved]
  - Wound infection [Unknown]
  - Oedema peripheral [Not Recovered/Not Resolved]
  - Skin lesion [Unknown]
  - Wound complication [Unknown]

NARRATIVE: CASE EVENT DATE: 202104
